FAERS Safety Report 8475203-X (Version None)
Quarter: 2012Q2

REPORT INFORMATION
  Report Type: 
  Country: None (occurrence: None)
  Receive Date: 20120628
  Receipt Date: 20120618
  Transmission Date: 20120825
  Serious: Yes (Hospitalization)
  Sender: FDA-Public Use
  Company Number: US-CELGENEUS-163-21880-12062631

PATIENT
  Age: 65 Year
  Sex: Female
  Weight: 78.9 kg

DRUGS (2)
  1. VELCADE [Suspect]
     Indication: MULTIPLE MYELOMA
     Dosage: 1 MILLIGRAM
     Route: 041
     Dates: start: 20111130, end: 20120430
  2. REVLIMID [Suspect]
     Indication: MULTIPLE MYELOMA
     Dosage: 25 MILLIGRAM
     Route: 048
     Dates: start: 20111201, end: 20120618

REACTIONS (5)
  - RENAL FAILURE ACUTE [None]
  - THROMBOCYTOPENIA [None]
  - HYPOTENSION [None]
  - ELECTROLYTE IMBALANCE [None]
  - ANAEMIA [None]
